FAERS Safety Report 8191102-5 (Version None)
Quarter: 2012Q1

REPORT INFORMATION
  Report Type: 
  Country: None (occurrence: None)
  Receive Date: 20120307
  Receipt Date: 20120302
  Transmission Date: 20120608
  Serious: Yes (Hospitalization)
  Sender: FDA-Public Use
  Company Number: CO-GLAXOSMITHKLINE-A0965577A

PATIENT
  Sex: Female
  Weight: 70 kg

DRUGS (4)
  1. LAPATINIB [Suspect]
     Indication: BREAST CANCER
     Dosage: 1250MG PER DAY
     Route: 048
  2. DEXAMETHASONE [Concomitant]
     Indication: METASTASES TO CENTRAL NERVOUS SYSTEM
     Dosage: 8MG THREE TIMES PER DAY
     Route: 042
     Dates: start: 20120129, end: 20120208
  3. CAPECITABINE [Suspect]
     Indication: BREAST CANCER
     Dosage: 3500MG CYCLIC
     Route: 048
  4. PHENYTOIN [Concomitant]
     Indication: CONVULSION
     Dosage: 300MG PER DAY
     Route: 048
     Dates: start: 20120129

REACTIONS (1)
  - PULMONARY EMBOLISM [None]
